FAERS Safety Report 25676081 (Version 1)
Quarter: 2025Q3

REPORT INFORMATION
  Report Type: Spontaneous
  Country: US (occurrence: None)
  Receive Date: 20250812
  Receipt Date: 20250812
  Transmission Date: 20251021
  Serious: Yes (Other)
  Sender: FDA-CTU
  Company Number: None

PATIENT
  Age: 40 Year
  Sex: Female
  Weight: 106.59 kg

DRUGS (6)
  1. MIRENA [Suspect]
     Active Substance: LEVONORGESTREL
  2. ESCITALOPRAM [Concomitant]
     Active Substance: ESCITALOPRAM OXALATE
  3. Mitocore [Concomitant]
  4. Thyrotain [Concomitant]
  5. Vitamin D3+K2 [Concomitant]
  6. COLLAGEN [Concomitant]
     Active Substance: COLLAGEN

REACTIONS (8)
  - Weight increased [None]
  - Anxiety [None]
  - Brain fog [None]
  - Lethargy [None]
  - Libido decreased [None]
  - Mental disorder [None]
  - Personal relationship issue [None]
  - Autoimmune disorder [None]

NARRATIVE: CASE EVENT DATE: 20181201
